FAERS Safety Report 5172656-X (Version None)
Quarter: 2006Q4

REPORT INFORMATION
  Report Type: 
  Country: None (occurrence: None)
  Receive Date: 20061205
  Receipt Date: 20061127
  Transmission Date: 20070319
  Serious: Yes (Life-Threatening)
  Sender: FDA-Public Use
  Company Number: 2006SP007379

PATIENT
  Age: 72 Year
  Sex: Female

DRUGS (1)
  1. TEMODAL [Suspect]
     Indication: OLIGODENDROGLIOMA
     Dosage: 120 MG; QD; PO
     Route: 048
     Dates: start: 20061021, end: 20061115

REACTIONS (1)
  - PULMONARY INFARCTION [None]
